FAERS Safety Report 5267632-2 (Version None)
Quarter: 2007Q1

REPORT INFORMATION
  Report Type: 
  Country: None (occurrence: None)
  Receive Date: 20070316
  Receipt Date: 20070307
  Transmission Date: 20070707
  Serious: Yes (Hospitalization)
  Sender: FDA-Public Use
  Company Number: PR-ABBOTT-07P-131-0361300-00

PATIENT
  Age: 63 Year
  Sex: Female

DRUGS (2)
  1. TRICOR [Suspect]
     Indication: BLOOD TRIGLYCERIDES INCREASED
     Route: 048
  2. LEVOTHYROXINE SODIUM [Concomitant]
     Indication: THYROID DISORDER
     Route: 048

REACTIONS (5)
  - HEPATIC ENZYME INCREASED [None]
  - HEPATITIS TOXIC [None]
  - JAUNDICE [None]
  - MYALGIA [None]
  - RASH [None]
